FAERS Safety Report 6052692-1 (Version None)
Quarter: 2009Q1

REPORT INFORMATION
  Report Type: 
  Country: None (occurrence: None)
  Receive Date: 20090121
  Receipt Date: 20090112
  Transmission Date: 20090719
  Serious: Yes (Disabling, Other)
  Sender: FDA-Public Use
  Company Number: 2009SP000790

PATIENT
  Age: 60 Year
  Sex: Male

DRUGS (2)
  1. PEG-INTRON [Suspect]
     Indication: HEPATITIS C
     Dosage: ; SC
     Route: 058
     Dates: start: 20081123
  2. RIBAVIRIN [Suspect]
     Indication: HEPATITIS C
     Dosage: ; PO
     Route: 048
     Dates: start: 20081123

REACTIONS (5)
  - ABASIA [None]
  - CONDITION AGGRAVATED [None]
  - HYPOAESTHESIA [None]
  - PULSE ABSENT [None]
  - SENSORY LOSS [None]
